FAERS Safety Report 4601296-3 (Version None)
Quarter: 2005Q1

REPORT INFORMATION
  Report Type: 
  Country: None (occurrence: None)
  Receive Date: 20050204
  Receipt Date: 20041111
  Transmission Date: 20050727
  Serious: No
  Sender: FDA-Public Use
  Company Number: 200410215

PATIENT

DRUGS (1)
  1. ELESTAT [Suspect]
     Indication: CONJUNCTIVITIS ALLERGIC

REACTIONS (2)
  - EYE SWELLING [None]
  - OCULAR HYPERAEMIA [None]
